FAERS Safety Report 23062995 (Version 2)
Quarter: 2023Q4

REPORT INFORMATION
  Report Type: Report from Study
  Country: IT (occurrence: IT)
  Receive Date: 20231013
  Receipt Date: 20231018
  Transmission Date: 20240110
  Serious: Yes (Other)
  Sender: FDA-Public Use
  Company Number: None

PATIENT
  Age: 73 Year
  Sex: Female
  Weight: 74 kg

DRUGS (6)
  1. PACLITAXEL [Suspect]
     Active Substance: PACLITAXEL
     Indication: Breast cancer stage IV
     Dosage: QW (WEEKLY ADMINISTRATION)
     Route: 042
     Dates: start: 20230516
  2. PACLITAXEL [Suspect]
     Active Substance: PACLITAXEL
     Dosage: 135 MILLIGRAM, QW (DAY 8 AS SECOND CYCLE)
     Route: 042
     Dates: start: 20230613, end: 20230613
  3. TRASTUZUMAB [Suspect]
     Active Substance: TRASTUZUMAB
     Indication: Breast cancer stage IV
     Dosage: Q2W (DAY 1, CYCLE 15 DAYS)
     Route: 042
     Dates: start: 20230516
  4. TRASTUZUMAB [Suspect]
     Active Substance: TRASTUZUMAB
     Dosage: 440 MILLIGRAM, Q2W (2 CYCLE)
     Route: 042
     Dates: start: 20230606, end: 20230606
  5. PERTUZUMAB [Suspect]
     Active Substance: PERTUZUMAB
     Indication: Breast cancer stage IV
     Dosage: Q2W (DAY 1, CYCLE 15 DAYS)
     Route: 042
     Dates: start: 20230516
  6. PERTUZUMAB [Suspect]
     Active Substance: PERTUZUMAB
     Dosage: 420 MILLIGRAM, Q2W (2 CYCLE)
     Route: 042
     Dates: start: 20230606, end: 20230606

REACTIONS (8)
  - Leukopenia [Recovering/Resolving]
  - Neutropenia [Recovering/Resolving]
  - Diarrhoea [Recovering/Resolving]
  - Asthenia [Recovering/Resolving]
  - Muscle atrophy [Recovering/Resolving]
  - Dehydration [Recovering/Resolving]
  - Decreased appetite [Recovered/Resolved]
  - Off label use [Recovering/Resolving]

NARRATIVE: CASE EVENT DATE: 20230613
